FAERS Safety Report 10645620 (Version 2)
Quarter: 2014Q4

REPORT INFORMATION
  Report Type: Report from Study
  Country: AT (occurrence: AT)
  Receive Date: 20141211
  Receipt Date: 20141211
  Transmission Date: 20150529
  Serious: Yes (Hospitalization)
  Sender: FDA-Public Use
  Company Number: AT-ASTRAZENECA-2014SE77489

PATIENT
  Age: 47 Year
  Sex: Male

DRUGS (13)
  1. PRAXITEN [Suspect]
     Active Substance: OXAZEPAM
     Route: 065
     Dates: start: 20140531, end: 20140608
  2. PRAXITEN [Suspect]
     Active Substance: OXAZEPAM
     Dosage: 100-0 MG, DAILY
     Route: 065
     Dates: start: 20140719, end: 20140729
  3. ABILIFY [Suspect]
     Active Substance: ARIPIPRAZOLE
     Dosage: 5 DAILY
     Route: 065
     Dates: start: 20140625, end: 20140629
  4. PRAXITEN [Suspect]
     Active Substance: OXAZEPAM
     Route: 065
     Dates: start: 20140619, end: 20140718
  5. PRAXITEN [Suspect]
     Active Substance: OXAZEPAM
     Dosage: 100-0 MG, DAILY
     Route: 065
     Dates: start: 20140719, end: 20140729
  6. PRAXITEN [Suspect]
     Active Substance: OXAZEPAM
     Route: 065
     Dates: start: 20140609, end: 20140618
  7. SUBSTITOL RET [Concomitant]
     Dates: start: 2008
  8. SEROQUEL XR [Suspect]
     Active Substance: QUETIAPINE FUMARATE
     Dosage: 400-800 MG DAILY
     Route: 048
     Dates: start: 20140531
  9. ABILIFY [Suspect]
     Active Substance: ARIPIPRAZOLE
     Dosage: 10 DAILY
     Route: 065
     Dates: start: 20140630, end: 20140707
  10. PRAXITEN [Suspect]
     Active Substance: OXAZEPAM
     Dosage: MAX 300 MG DAILY
     Route: 065
     Dates: start: 2013, end: 20140530
  11. CIPRALEX [Suspect]
     Active Substance: ESCITALOPRAM OXALATE
     Dosage: 10-30MG DAILY
     Route: 065
     Dates: start: 20140531
  12. TRITTICO RET [Concomitant]
     Dosage: 150 DAILY
     Dates: start: 20140616, end: 20140718
  13. AKINETON RET [Concomitant]
     Dates: start: 20140630, end: 20140701

REACTIONS (4)
  - Delirium [Unknown]
  - Tremor [Recovered/Resolved]
  - Psychomotor skills impaired [Unknown]
  - Gait disturbance [Unknown]

NARRATIVE: CASE EVENT DATE: 20140625
